FAERS Safety Report 9123074 (Version 2)
Quarter: 2013Q2

REPORT INFORMATION
  Report Type: Spontaneous
  Country: US (occurrence: US)
  Receive Date: 20130227
  Receipt Date: 20130509
  Transmission Date: 20140414
  Serious: Yes (Hospitalization)
  Sender: FDA-Public Use
  Company Number: US-ELI_LILLY_AND_COMPANY-US201208002478

PATIENT
  Sex: Male
  Weight: 126.98 kg

DRUGS (14)
  1. HUMULIN REGULAR [Suspect]
     Dosage: 45 U, TID
     Route: 058
  2. HUMULIN REGULAR [Suspect]
     Dosage: 900 U, QD
  3. AMBIEN [Concomitant]
     Dosage: 10 MG, EACH EVENING
  4. ASACOL [Concomitant]
     Dosage: 800 MG, UNK
  5. ASPIRIN [Concomitant]
     Dosage: 325 MG, QD
  6. BENTYL [Concomitant]
     Dosage: 20 MG, QD
  7. BUMEX [Concomitant]
     Dosage: 4 MG, EACH MORNING
  8. BUMEX [Concomitant]
     Dosage: 3 MG, EACH EVENING
  9. LISINOPRIL [Concomitant]
     Dosage: 20 MG, BID
  10. LOVAZA [Concomitant]
     Dosage: 1 G, BID
  11. METOPROLOL SUCCINATE [Concomitant]
     Dosage: 100 MG, QD
  12. NORCO [Concomitant]
     Dosage: 325 MG, QD
  13. POTASSIUM CHLORIDE [Concomitant]
     Dosage: 20 MEQ, TID
  14. PREVACID [Concomitant]
     Dosage: 30 MG, BID

REACTIONS (3)
  - Hyperglycaemia [Recovered/Resolved]
  - Insulin resistance [Recovered/Resolved]
  - Off label use [Not Recovered/Not Resolved]
